FAERS Safety Report 7538113-8 (Version None)
Quarter: 2011Q2

REPORT INFORMATION
  Report Type: 
  Country: None (occurrence: None)
  Receive Date: 20110609
  Receipt Date: 19970815
  Transmission Date: 20111010
  Serious: Yes (Other)
  Sender: FDA-Public Use
  Company Number: PHHO1997BR04071

PATIENT
  Sex: Male

DRUGS (3)
  1. HYGROTON [Concomitant]
     Dosage: 12.5 MG,DAILY
     Route: 065
  2. DILTIAZEM [Concomitant]
     Dosage: 120 MG,DAILY
     Route: 065
  3. DIOVAN [Suspect]
     Dosage: 80 MG,DAILY
     Route: 048

REACTIONS (1)
  - HYPERTENSIVE CRISIS [None]
